FAERS Safety Report 5473952-9 (Version None)
Quarter: 2007Q3

REPORT INFORMATION
  Report Type: 
  Country: None (occurrence: None)
  Receive Date: 20070831
  Receipt Date: 20070629
  Transmission Date: 20080115
  Serious: No
  Sender: FDA-Public Use
  Company Number: 230784

PATIENT
  Age: 84 Year
  Sex: Female

DRUGS (4)
  1. LUCENTIS [Suspect]
     Indication: MACULAR DEGENERATION
     Dosage: 0.5 MG, INTRAVITREAL
     Dates: start: 20060719
  2. CORDARONE [Concomitant]
  3. PLAVIX [Concomitant]
  4. ZYNAR (GATIFLOXACIN) [Concomitant]

REACTIONS (2)
  - COUGH [None]
  - SNEEZING [None]
